FAERS Safety Report 16859463 (Version 1)
Quarter: 2019Q3

REPORT INFORMATION
  Report Type: Spontaneous
  Country: HU (occurrence: HU)
  Receive Date: 20190927
  Receipt Date: 20190927
  Transmission Date: 20191005
  Serious: Yes (Hospitalization)
  Sender: FDA-Public Use
  Company Number: HU-AMGEN-HUNSP2018145122

PATIENT
  Age: 15 Year
  Sex: Male

DRUGS (1)
  1. XGEVA [Suspect]
     Active Substance: DENOSUMAB
     Indication: MALIGNANT PALATE NEOPLASM
     Dosage: UNK, QMO
     Route: 065
     Dates: start: 20181012

REACTIONS (3)
  - Off label use [Unknown]
  - Blood calcium increased [Unknown]
  - Blood calcium decreased [Unknown]

NARRATIVE: CASE EVENT DATE: 20181013
